FAERS Safety Report 7508479-3 (Version None)
Quarter: 2011Q2

REPORT INFORMATION
  Report Type: 
  Country: None (occurrence: None)
  Receive Date: 20110527
  Receipt Date: 20110523
  Transmission Date: 20111010
  Serious: Yes (Hospitalization, Other)
  Sender: FDA-Public Use
  Company Number: US-PFIZER INC-2011044394

PATIENT
  Sex: Male

DRUGS (17)
  1. CLONIDINE [Concomitant]
     Indication: HYPERTENSION
     Dosage: UNK
  2. ELAVIL [Concomitant]
     Indication: PAIN
     Dosage: UNK
     Dates: start: 20050101, end: 20100101
  3. CHANTIX [Suspect]
     Indication: SMOKING CESSATION THERAPY
     Dosage: 0.5MG AND 1MG
     Dates: start: 20071102, end: 20090626
  4. ALBUTEROL SULFATE AUTOHALER [Concomitant]
     Indication: ASTHMA
     Dosage: UNK
  5. BACLOFEN [Concomitant]
     Indication: ROTATOR CUFF SYNDROME
  6. NEURONTIN [Concomitant]
     Indication: NEURALGIA
     Dosage: UNK
     Dates: start: 20040101, end: 20090101
  7. CIALIS [Concomitant]
     Indication: ERECTILE DYSFUNCTION
     Dosage: UNK
     Dates: start: 20060101
  8. CLONAZEPAM [Concomitant]
     Indication: ANXIETY
  9. VASOTEC [Concomitant]
     Indication: HYPERTENSION
     Dosage: UNK
  10. BACLOFEN [Concomitant]
     Indication: PAIN
     Dosage: UNK
  11. CLONAZEPAM [Concomitant]
     Indication: CONVULSION
  12. CLONAZEPAM [Concomitant]
     Indication: SUICIDAL IDEATION
  13. TEGRETOL [Concomitant]
     Indication: CONVULSION
     Dosage: UNK
  14. CLONAZEPAM [Concomitant]
     Indication: RESTLESS LEGS SYNDROME
     Dosage: UNK
  15. CLONAZEPAM [Concomitant]
     Indication: PAIN
  16. MAXZIDE [Concomitant]
     Indication: HYPERTENSION
     Dosage: UNK
  17. NEXIUM [Concomitant]
     Indication: GASTROOESOPHAGEAL REFLUX DISEASE
     Dosage: UNK

REACTIONS (8)
  - CONVULSION [None]
  - ANXIETY [None]
  - AGGRESSION [None]
  - INSOMNIA [None]
  - SUICIDE ATTEMPT [None]
  - INTENTIONAL OVERDOSE [None]
  - DEPRESSION [None]
  - ABNORMAL DREAMS [None]
